FAERS Safety Report 9028365 (Version 1)
Quarter: 2013Q1

REPORT INFORMATION
  Report Type: Spontaneous
  Country: US (occurrence: US)
  Receive Date: 20130124
  Receipt Date: 20130124
  Transmission Date: 20140127
  Serious: No
  Sender: FDA-Public Use
  Company Number: US-009507513-1301USA010817

PATIENT
  Sex: Male

DRUGS (3)
  1. ZIOPTAN [Suspect]
     Indication: GLAUCOMA
     Dosage: 0.0015%/ONE DROP IN THE RIGHT EYE IN THE EVENTING
     Route: 047
     Dates: start: 201211
  2. ATENOLOL [Concomitant]
  3. ZETIA [Concomitant]

REACTIONS (3)
  - Eyelids pruritus [Recovered/Resolved]
  - Eyelid disorder [Recovered/Resolved]
  - Erythema of eyelid [Recovered/Resolved]
